FAERS Safety Report 24401531 (Version 2)
Quarter: 2024Q4

REPORT INFORMATION
  Report Type: Spontaneous
  Country: EG (occurrence: EG)
  Receive Date: 20241007
  Receipt Date: 20241015
  Transmission Date: 20250114
  Serious: Yes (Life-Threatening, Hospitalization)
  Sender: ACCORD
  Company Number: EG-MLMSERVICE-20240919-PI196444-00108-1

PATIENT
  Age: 24 Year
  Sex: Male

DRUGS (3)
  1. CLOZAPINE [Suspect]
     Active Substance: CLOZAPINE
     Indication: Insomnia
     Dosage: HELPFUL TO CONTROL INSOMNIA, STRENGTH: 100 MG
     Route: 048
  2. CLOZAPINE [Suspect]
     Active Substance: CLOZAPINE
     Indication: Insomnia
     Dosage: 10 TO 15 TABLETS OF 100MG
     Route: 048
  3. CLOZAPINE [Suspect]
     Active Substance: CLOZAPINE
     Indication: Insomnia
     Dosage: 10 TO 15 TABLETS OF 100MG
     Route: 048

REACTIONS (16)
  - Hypertension [Recovered/Resolved]
  - Loss of consciousness [Recovered/Resolved]
  - Hyperglycaemia [Recovered/Resolved]
  - Suicide attempt [Recovered/Resolved]
  - Hypokalaemia [Recovered/Resolved]
  - Toxicity to various agents [Recovered/Resolved]
  - Extrapyramidal disorder [Recovered/Resolved]
  - Agitation [Recovered/Resolved]
  - Electrocardiogram QT prolonged [Recovered/Resolved]
  - Drug-induced liver injury [Recovered/Resolved]
  - Salivary hypersecretion [Unknown]
  - Sinus tachycardia [Recovered/Resolved]
  - Myocarditis [Recovered/Resolved]
  - Dysarthria [Recovered/Resolved]
  - Restlessness [Recovered/Resolved]
  - Hallucination [Recovered/Resolved]
